FAERS Safety Report 21002970 (Version 2)
Quarter: 2022Q2

REPORT INFORMATION
  Report Type: Spontaneous
  Country: US (occurrence: US)
  Receive Date: 20220624
  Receipt Date: 20220628
  Transmission Date: 20220721
  Serious: Yes (Other)
  Sender: FDA-Public Use
  Company Number: US-BAXTER-2022BAX012834

PATIENT
  Age: 75 Year
  Sex: Female

DRUGS (1)
  1. DIANEAL LOW CALCIUM PERITONEAL DIALYSIS SOLUTION WITH DEXTROSE [Suspect]
     Active Substance: CALCIUM CHLORIDE\DEXTROSE\MAGNESIUM CHLORIDE\SODIUM CHLORIDE\SODIUM LACTATE
     Indication: Peritoneal dialysis
     Dosage: UNK
     Route: 033

REACTIONS (10)
  - Azotaemia [Unknown]
  - Hypertension [Unknown]
  - Weight decreased [Unknown]
  - Illness [Unknown]
  - Dizziness [Unknown]
  - Vertigo [Unknown]
  - Asthenia [Unknown]
  - Gait disturbance [Unknown]
  - Dehydration [Unknown]
  - Malaise [Not Recovered/Not Resolved]

NARRATIVE: CASE EVENT DATE: 20220616
